FAERS Safety Report 6664372-X (Version None)
Quarter: 2010Q2

REPORT INFORMATION
  Report Type: 
  Country: None (occurrence: None)
  Receive Date: 20100401
  Receipt Date: 20100326
  Transmission Date: 20101027
  Serious: Yes (Hospitalization, Other)
  Sender: FDA-Public Use
  Company Number: PHEH2010US03347

PATIENT
  Sex: Female

DRUGS (2)
  1. RECLAST [Suspect]
     Indication: OSTEOPOROSIS
     Dosage: 5 MG, UNK
     Dates: start: 20090322
  2. FOLFOX-4 [Suspect]
     Indication: COLON CANCER
     Dosage: UNK
     Dates: start: 20090801

REACTIONS (5)
  - COLON CANCER [None]
  - EYE SWELLING [None]
  - SINUS DISORDER [None]
  - SWELLING FACE [None]
  - VOMITING [None]
